FAERS Safety Report 8501485 (Version 3)
Quarter: 2012Q4

REPORT INFORMATION
  Report Type: 
  Country: US (occurrence: US)
  Receive Date: 20120410
  Receipt Date: 20121207
  Transmission Date: 20130627
  Serious: Yes (Hospitalization)
  Sender: FDA-Public Use
  Company Number: US-BAYER-2012-032278

PATIENT
  Age: 45 Year
  Sex: Female
  Weight: 70 kg

DRUGS (7)
  1. YAZ [Suspect]
     Dosage: UNK
     Dates: start: 200703, end: 200706
  2. ALLEGRA-D [Concomitant]
     Dosage: 1 daily
     Route: 048
     Dates: start: 20070416
  3. DRUGS FOR OBSTRUCTIVE AIRWAY DISEASES [Concomitant]
     Dosage: 8.5gm 2 puffs qid or 1 puff q4 prn
     Route: 048
     Dates: start: 20070418
  4. CLARITHROMYCIN [Concomitant]
     Dosage: 500 mg, UNK
     Route: 048
     Dates: start: 20070522, end: 20070524
  5. CHERATUSSIN DAC [Concomitant]
     Dosage: 2 Teaspoonsful after meals and at bedtime
     Route: 048
     Dates: start: 20070517
  6. PIROXICAM [Concomitant]
     Dosage: 20 mg, daily
     Route: 048
     Dates: start: 20070601, end: 20070609
  7. LIPITOR [Concomitant]
     Dosage: UNK
     Dates: start: 2006, end: 200910

REACTIONS (11)
  - Pulmonary embolism [None]
  - Deep vein thrombosis [None]
  - Pain in extremity [None]
  - Arthralgia [None]
  - Joint swelling [None]
  - Oedema peripheral [None]
  - Injury [None]
  - Pain [None]
  - Emotional distress [None]
  - General physical health deterioration [None]
  - Anxiety [None]
